FAERS Safety Report 5512414-7 (Version None)
Quarter: 2007Q4

REPORT INFORMATION
  Report Type: 
  Country: None (occurrence: None)
  Receive Date: 20071112
  Receipt Date: 20070108
  Transmission Date: 20080405
  Serious: No
  Sender: FDA-Public Use
  Company Number: A0544937A

PATIENT
  Age: 49 Year
  Sex: Female

DRUGS (3)
  1. AVANDAMET [Suspect]
     Dosage: 1TAB PER DAY
     Route: 048
     Dates: start: 20041211, end: 20050207
  2. NEXIUM [Concomitant]
     Indication: ILL-DEFINED DISORDER
     Route: 048
  3. VITAMINS [Concomitant]
     Route: 048

REACTIONS (6)
  - ANORGASMIA [None]
  - DRUG INEFFECTIVE [None]
  - DYSGEUSIA [None]
  - FLATULENCE [None]
  - HYPOAESTHESIA [None]
  - SEXUAL DYSFUNCTION [None]
